FAERS Safety Report 18505937 (Version 2)
Quarter: 2021Q1

REPORT INFORMATION
  Report Type: Report from Study
  Country: US (occurrence: US)
  Receive Date: 20201116
  Receipt Date: 20210317
  Transmission Date: 20210419
  Serious: Yes (Other)
  Sender: FDA-Public Use
  Company Number: NVSC2020US303258

PATIENT
  Age: 6 Year
  Sex: Male

DRUGS (4)
  1. KYMRIAH [Suspect]
     Active Substance: TISAGENLECLEUCEL
     Indication: LYMPHOCYTIC LEUKAEMIA
  2. KYMRIAH [Suspect]
     Active Substance: TISAGENLECLEUCEL
     Indication: ACUTE LYMPHOCYTIC LEUKAEMIA
     Dosage: UNK, ONCE/SINGLE
     Route: 042
     Dates: start: 20200803
  3. FLUDARABINE [Concomitant]
     Active Substance: FLUDARABINE PHOSPHATE
     Indication: CHEMOTHERAPY
     Dosage: UNK
     Route: 065
  4. CYCLOPHOSPHAMIDE. [Concomitant]
     Active Substance: CYCLOPHOSPHAMIDE
     Indication: CHEMOTHERAPY
     Dosage: UNK
     Route: 065

REACTIONS (1)
  - Acute lymphocytic leukaemia recurrent [Unknown]
